FAERS Safety Report 13318559 (Version 1)
Quarter: 2017Q1

REPORT INFORMATION
  Report Type: Spontaneous
  Country: US (occurrence: US)
  Receive Date: 20170309
  Receipt Date: 20170309
  Transmission Date: 20170428
  Serious: No
  Sender: FDA-Public Use
  Company Number: None

PATIENT
  Age: 62 Year
  Sex: Male

DRUGS (3)
  1. COPAXONE [Suspect]
     Active Substance: GLATIRAMER ACETATE
     Indication: ANXIETY DISORDER
  2. COPAXONE [Suspect]
     Active Substance: GLATIRAMER ACETATE
     Indication: RHEUMATOID ARTHRITIS
  3. COPAXONE [Suspect]
     Active Substance: GLATIRAMER ACETATE
     Indication: HYPERTENSION

REACTIONS (3)
  - Nervous system disorder [None]
  - Injection site bruising [None]
  - Fatigue [None]

NARRATIVE: CASE EVENT DATE: 20170309
